FAERS Safety Report 8535591-2 (Version None)
Quarter: 2012Q2

REPORT INFORMATION
  Report Type: 
  Country: None (occurrence: None)
  Receive Date: 20120412
  Receipt Date: 20100503
  Transmission Date: 20120825
  Serious: Yes (Other)
  Sender: FDA-Public Use
  Company Number: PHHY2010US18694

PATIENT
  Sex: Female

DRUGS (18)
  1. CLOZARIL [Suspect]
     Indication: HALLUCINATION
     Dosage: 12.5 MG, BID, ORAL 50 MG, QD, ORAL 100 MG, QD 150 MG, QD 200 MG, QD 300 MG QD
     Route: 048
     Dates: start: 20080304
  2. CLOZARIL [Suspect]
     Indication: HALLUCINATION
     Dosage: 12.5 MG, BID, ORAL 50 MG, QD, ORAL 100 MG, QD 150 MG, QD 200 MG, QD 300 MG QD
     Route: 048
     Dates: start: 20080219
  3. CLOZARIL [Suspect]
     Indication: HALLUCINATION
     Dosage: 12.5 MG, BID, ORAL 50 MG, QD, ORAL 100 MG, QD 150 MG, QD 200 MG, QD 300 MG QD
     Route: 048
     Dates: start: 20080501
  4. CLOZARIL [Suspect]
     Indication: HALLUCINATION
     Dosage: 12.5 MG, BID, ORAL 50 MG, QD, ORAL 100 MG, QD 150 MG, QD 200 MG, QD 300 MG QD
     Route: 048
     Dates: start: 20080701
  5. CLOZARIL [Suspect]
     Indication: HALLUCINATION
     Dosage: 12.5 MG, BID, ORAL 50 MG, QD, ORAL 100 MG, QD 150 MG, QD 200 MG, QD 300 MG QD
     Route: 048
     Dates: start: 20080901, end: 20100325
  6. CLOZARIL [Suspect]
     Indication: HALLUCINATION
     Dosage: 12.5 MG, BID, ORAL 50 MG, QD, ORAL 100 MG, QD 150 MG, QD 200 MG, QD 300 MG QD
     Route: 048
     Dates: start: 20080801
  7. MERIDIA [Concomitant]
  8. FOLIC ACID [Concomitant]
  9. PRISTIQ [Concomitant]
  10. TOPAMAX [Concomitant]
  11. CYMBALTA [Concomitant]
  12. SEROQUEL [Concomitant]
  13. TRILIPIX [Concomitant]
  14. XANAX [Concomitant]
  15. COGENTIN [Concomitant]
  16. ULTRAM [Concomitant]
  17. NEXIUM [Concomitant]
  18. SYNTHROID [Concomitant]

REACTIONS (2)
  - NEUTROPHIL COUNT DECREASED [None]
  - WHITE BLOOD CELL COUNT INCREASED [None]
